FAERS Safety Report 5161660-3 (Version None)
Quarter: 2006Q4

REPORT INFORMATION
  Report Type: 
  Country: None (occurrence: None)
  Receive Date: 20061130
  Receipt Date: 20060330
  Transmission Date: 20070319
  Serious: No
  Sender: FDA-Public Use
  Company Number: US-BRISTOL-MYERS SQUIBB COMPANY-13331947

PATIENT
  Age: 71 Year
  Sex: Female
  Weight: 103 kg

DRUGS (8)
  1. GLUCOPHAGE XR [Suspect]
     Indication: DIABETES MELLITUS
  2. ACTOS [Concomitant]
  3. GLIPIZIDE [Concomitant]
  4. HYDROCHLOROTHIAZIDE [Concomitant]
  5. ERYTHROMYCIN [Concomitant]
  6. LEVOTHYROXINE SODIUM [Concomitant]
  7. LIPITOR [Concomitant]
  8. MORPHINE [Concomitant]
     Dosage: MORPHINE PUMP - CATHETER INSERTED IN BASE OF THE SPINE
     Route: 008

REACTIONS (6)
  - COLD SWEAT [None]
  - DIZZINESS [None]
  - FEELING DRUNK [None]
  - NAUSEA [None]
  - SOMNOLENCE [None]
  - VOMITING [None]
